FAERS Safety Report 5776686-6 (Version None)
Quarter: 2008Q2

REPORT INFORMATION
  Report Type: 
  Country: None (occurrence: None)
  Receive Date: 20080616
  Receipt Date: 20080612
  Transmission Date: 20081010
  Serious: Yes (Other)
  Sender: FDA-Public Use
  Company Number: 2008SP011526

PATIENT
  Age: 59 Year
  Sex: Male
  Weight: 50 kg

DRUGS (3)
  1. TEMODAL [Suspect]
     Indication: MALIGNANT GLIOMA
     Dosage: 120 MG;QD;PO
     Route: 048
     Dates: start: 20071029, end: 20080425
  2. NASEA [Concomitant]
  3. ALEVIATIN [Concomitant]

REACTIONS (2)
  - INTERSTITIAL LUNG DISEASE [None]
  - SEASONAL ALLERGY [None]
